FAERS Safety Report 18772721 (Version 1)
Quarter: 2021Q1

REPORT INFORMATION
  Report Type: Spontaneous
  Country: CA (occurrence: CA)
  Receive Date: 20210121
  Receipt Date: 20210121
  Transmission Date: 20210419
  Serious: Yes (Other)
  Sender: FDA-Public Use
  Company Number: CA-ROCHE-2751775

PATIENT
  Age: 25 Year
  Sex: Male

DRUGS (14)
  1. HYDROXYCHLOROQUINE SULFATE. [Concomitant]
     Active Substance: HYDROXYCHLOROQUINE SULFATE
  2. PENICILLIN G POTASSIUM. [Concomitant]
     Active Substance: PENICILLIN G POTASSIUM
  3. ENBREL [Suspect]
     Active Substance: ETANERCEPT
     Indication: RHEUMATOID ARTHRITIS
     Route: 058
  4. INFLIXIMAB [Suspect]
     Active Substance: INFLIXIMAB
     Indication: RHEUMATOID ARTHRITIS
     Route: 042
  5. ORENCIA [Suspect]
     Active Substance: ABATACEPT
     Indication: PRODUCT USED FOR UNKNOWN INDICATION
     Route: 058
  6. XELJANZ [Concomitant]
     Active Substance: TOFACITINIB CITRATE
  7. PENICILLIN?G [Concomitant]
     Active Substance: PENICILLIN G
  8. HUMIRA [Suspect]
     Active Substance: ADALIMUMAB
     Indication: PRODUCT USED FOR UNKNOWN INDICATION
     Route: 058
  9. XELJANZ [Concomitant]
     Active Substance: TOFACITINIB CITRATE
  10. METHOTREXATE. [Concomitant]
     Active Substance: METHOTREXATE
  11. ARAVA [Concomitant]
     Active Substance: LEFLUNOMIDE
  12. ARAVA [Concomitant]
     Active Substance: LEFLUNOMIDE
  13. HYDROXYCHLOROQUINE SULFATE. [Concomitant]
     Active Substance: HYDROXYCHLOROQUINE SULFATE
  14. ACTEMRA [Suspect]
     Active Substance: TOCILIZUMAB
     Indication: PRODUCT USED FOR UNKNOWN INDICATION
     Route: 058

REACTIONS (8)
  - C-reactive protein decreased [Unknown]
  - Off label use [Unknown]
  - Pain in jaw [Unknown]
  - Contraindicated product administered [Unknown]
  - Arthralgia [Unknown]
  - Oedema peripheral [Unknown]
  - Oral disorder [Unknown]
  - Rheumatoid arthritis [Unknown]
